FAERS Safety Report 4417407-9 (Version None)
Quarter: 2004Q3

REPORT INFORMATION
  Report Type: 
  Country: None (occurrence: None)
  Receive Date: 20040803
  Receipt Date: 20040721
  Transmission Date: 20050211
  Serious: Yes (Life-Threatening)
  Sender: FDA-Public Use
  Company Number: 2004224741US

PATIENT
  Age: 52 Year
  Sex: Male

DRUGS (2)
  1. SOLU-MEDROL [Suspect]
     Indication: MULTIPLE SCLEROSIS
     Dosage: 1 G, SINGLE, IV
     Route: 042
     Dates: start: 20040716, end: 20040716
  2. AVONEX [Concomitant]

REACTIONS (4)
  - HYPERHIDROSIS [None]
  - HYPOTENSION [None]
  - NAUSEA [None]
  - VOMITING [None]
